FAERS Safety Report 5032013-3 (Version None)
Quarter: 2006Q2

REPORT INFORMATION
  Report Type: 
  Country: None (occurrence: None)
  Receive Date: 20060605
  Receipt Date: 20060410
  Transmission Date: 20061013
  Serious: Yes (Other)
  Sender: FDA-Public Use
  Company Number: 2006BH007777

PATIENT
  Age: 65 Year
  Sex: Male

DRUGS (6)
  1. GAMMAGARD S/D [Suspect]
     Indication: DEMYELINATING POLYNEUROPATHY
     Dosage: 140 GM; AS NEEDED
     Dates: start: 20060109, end: 20060112
  2. GAMMAGARD S/D [Suspect]
     Indication: POLYNEUROPATHY CHRONIC
     Dosage: 140 GM; AS NEEDED
     Dates: start: 20060109, end: 20060112
  3. SPIRIX [Concomitant]
  4. FELODIPINE [Concomitant]
  5. MAGNYL /OLD FORM/ ^DAK^ [Concomitant]
  6. SYMBICORT TURBUHALER ^DRACO^ [Concomitant]

REACTIONS (6)
  - BLISTER [None]
  - EXTRAVASATION [None]
  - RASH GENERALISED [None]
  - RASH PRURITIC [None]
  - SKIN ATROPHY [None]
  - SKIN EXFOLIATION [None]
